FAERS Safety Report 13197495 (Version 1)
Quarter: 2017Q1

REPORT INFORMATION
  Report Type: Spontaneous
  Country: US (occurrence: US)
  Receive Date: 20170208
  Receipt Date: 20170208
  Transmission Date: 20170428
  Serious: No
  Sender: FDA-Public Use
  Company Number: US-PERRIGO-16US019661

PATIENT
  Age: 1 Year
  Sex: Male
  Weight: 9.52 kg

DRUGS (4)
  1. ACETAMINOPHEN. [Concomitant]
     Active Substance: ACETAMINOPHEN
     Indication: PAIN
     Dosage: PRN
     Route: 065
     Dates: start: 201602
  2. IBUPROFEN. [Suspect]
     Active Substance: IBUPROFEN
     Dosage: ADDITIONAL 75 MG, SINGLE, FOUR HOURS LATER
     Route: 048
     Dates: start: 20160830, end: 20160830
  3. IBUPROFEN. [Suspect]
     Active Substance: IBUPROFEN
     Indication: PYREXIA
     Dosage: 75 MG, EVERY 6 TO 8 HRS PRN
     Route: 048
     Dates: start: 201607
  4. IBUPROFEN. [Suspect]
     Active Substance: IBUPROFEN
     Indication: PAIN
     Dosage: 50 MG, EVERY 6 TO 8 HRS PRN
     Route: 048
     Dates: start: 201602, end: 201607

REACTIONS (1)
  - Extra dose administered [Recovered/Resolved]

NARRATIVE: CASE EVENT DATE: 20160830
